FAERS Safety Report 17105661 (Version 1)
Quarter: 2019Q4

REPORT INFORMATION
  Report Type: Spontaneous
  Country: DE (occurrence: DE)
  Receive Date: 20191203
  Receipt Date: 20191203
  Transmission Date: 20200122
  Serious: Yes (Life-Threatening, Hospitalization, Other)
  Sender: FDA-Public Use
  Company Number: DE-MYLANLABS-2019M1116812

PATIENT
  Age: 39 Year
  Sex: Female

DRUGS (4)
  1. ZONEGRAN [Concomitant]
     Active Substance: ZONISAMIDE
     Dosage: 200 MG, 1-1-1-0
  2. VALPROAT [Suspect]
     Active Substance: VALPROATE SODIUM
     Indication: PRODUCT USED FOR UNKNOWN INDICATION
     Dosage: 2.5 ML, 1-0-1-0, SAFT
  3. BERODUAL [Concomitant]
     Active Substance: FENOTEROL HYDROBROMIDE\IPRATROPIUM BROMIDE
     Dosage: BEDARF 1-2 HUB, DOSIERAEROSOL
     Route: 055
  4. TRAMADOL. [Suspect]
     Active Substance: TRAMADOL
     Indication: PRODUCT USED FOR UNKNOWN INDICATION
     Dosage: NK MG, BIS ZU 4X TGL.BEI BEDARF

REACTIONS (2)
  - Seizure [Unknown]
  - Therapeutic drug monitoring analysis not performed [Unknown]

NARRATIVE: CASE EVENT DATE: 20171206
